FAERS Safety Report 25815523 (Version 1)
Quarter: 2025Q3

REPORT INFORMATION
  Report Type: Spontaneous
  Country: US (occurrence: US)
  Receive Date: 20250918
  Receipt Date: 20250918
  Transmission Date: 20251020
  Serious: Yes (Other)
  Sender: NORTHSTAR
  Company Number: US-NORTHSTAR RX LLC-US-2025NSR000031

PATIENT
  Age: 33 Year
  Sex: Male

DRUGS (2)
  1. BACLOFEN [Suspect]
     Active Substance: BACLOFEN
     Indication: Paraplegia
     Route: 050
  2. BACLOFEN [Suspect]
     Active Substance: BACLOFEN
     Indication: Muscle spasticity
     Route: 050

REACTIONS (7)
  - Pulseless electrical activity [Unknown]
  - Supraventricular tachycardia [None]
  - Mental status changes [Unknown]
  - Musculoskeletal stiffness [Unknown]
  - Unresponsive to stimuli [Unknown]
  - Eye movement disorder [Unknown]
  - Hypotension [None]
